FAERS Safety Report 10986061 (Version 1)
Quarter: 2015Q2

REPORT INFORMATION
  Report Type: Report from Study
  Country: BR (occurrence: BR)
  Receive Date: 20150404
  Receipt Date: 20150404
  Transmission Date: 20150821
  Serious: Yes (Death)
  Sender: FDA-Public Use
  Company Number: PHHY2015BR040115

PATIENT
  Sex: Male

DRUGS (1)
  1. EXELON PATCH [Suspect]
     Active Substance: RIVASTIGMINE
     Indication: DEMENTIA ALZHEIMER^S TYPE
     Dosage: 1 DF (ADHESIVE), QD
     Route: 062
     Dates: start: 201409

REACTIONS (3)
  - Prostate cancer [Fatal]
  - Condition aggravated [Fatal]
  - Dementia Alzheimer^s type [Fatal]
